FAERS Safety Report 8141648-0 (Version None)
Quarter: 2012Q1

REPORT INFORMATION
  Report Type: 
  Country: None (occurrence: None)
  Receive Date: 20120216
  Receipt Date: 20120206
  Transmission Date: 20120608
  Serious: Yes (Hospitalization, Other)
  Sender: FDA-Public Use
  Company Number: DE-SANOFI-AVENTIS-2011SA071137

PATIENT
  Age: 54 Year
  Sex: Female
  Weight: 48 kg

DRUGS (12)
  1. BEVACIZUMAB [Suspect]
     Route: 042
     Dates: start: 20101230, end: 20110606
  2. BUDESONIDE [Concomitant]
  3. DOCETAXEL [Suspect]
     Route: 042
     Dates: start: 20101230, end: 20110323
  4. BEVACIZUMAB [Suspect]
     Route: 042
     Dates: start: 20101230, end: 20110606
  5. PACLITAXEL [Suspect]
     Route: 042
     Dates: start: 20110413, end: 20110525
  6. SALBULAIR [Concomitant]
  7. BEVACIZUMAB [Suspect]
     Route: 042
     Dates: start: 20101230, end: 20110606
  8. PACLITAXEL [Suspect]
     Route: 042
     Dates: start: 20110413, end: 20110525
  9. DOCETAXEL [Suspect]
     Route: 042
     Dates: start: 20101230, end: 20110323
  10. FORADIL [Concomitant]
  11. THALIDOMIDE [Concomitant]
  12. PACLITAXEL [Suspect]
     Route: 042
     Dates: start: 20110413, end: 20110525

REACTIONS (3)
  - PNEUMONIA [None]
  - DIARRHOEA [None]
  - EJECTION FRACTION DECREASED [None]
